FAERS Safety Report 17119015 (Version 1)
Quarter: 2019Q4

REPORT INFORMATION
  Report Type: Spontaneous
  Country: US (occurrence: US)
  Receive Date: 20191206
  Receipt Date: 20191206
  Transmission Date: 20200122
  Serious: No
  Sender: FDA-Public Use
  Company Number: US-UCBSA-2017035751

PATIENT

DRUGS (3)
  1. VIMPAT [Suspect]
     Active Substance: LACOSAMIDE
     Indication: PRODUCT USED FOR UNKNOWN INDICATION
     Dosage: UNK
  2. ONFI [Suspect]
     Active Substance: CLOBAZAM
     Indication: PRODUCT USED FOR UNKNOWN INDICATION
     Dosage: UNK, 2X/DAY (BID) (5 MG IN MORNING AND 10 MG AT NIGHT)
  3. ONFI [Suspect]
     Active Substance: CLOBAZAM
     Dosage: UNK INCREASED DOSE

REACTIONS (3)
  - Feeling abnormal [Unknown]
  - Mood swings [Unknown]
  - Thinking abnormal [Unknown]
